FAERS Safety Report 5178839-7 (Version None)
Quarter: 2006Q4

REPORT INFORMATION
  Report Type: 
  Country: None (occurrence: None)
  Receive Date: 20061208
  Receipt Date: 20061130
  Transmission Date: 20070319
  Serious: Yes (Other)
  Sender: FDA-Public Use
  Company Number: 2006148162

PATIENT
  Age: 48 Year
  Sex: Female
  Weight: 81.6475 kg

DRUGS (3)
  1. GEODON [Suspect]
     Indication: BIPOLAR DISORDER
     Dosage: 60 MG (60 MG, 1 IN 1 D)
     Dates: start: 20060101
  2. LEVOXYL [Concomitant]
  3. LITHIUM CARBONATE [Concomitant]

REACTIONS (1)
  - MASS [None]
